FAERS Safety Report 6748758-0 (Version None)
Quarter: 2010Q2

REPORT INFORMATION
  Report Type: 
  Country: None (occurrence: None)
  Receive Date: 20100527
  Receipt Date: 20100527
  Transmission Date: 20101027
  Serious: Yes (Disabling)
  Sender: FDA-Public Use
  Company Number: None

PATIENT
  Sex: Male
  Weight: 102.5129 kg

DRUGS (2)
  1. RISPERDAL [Suspect]
     Indication: IRRITABILITY
     Dosage: 1 TABLET ONCE BEDTIME
     Dates: start: 20080401
  2. LEXAPRO [Suspect]
     Dosage: 1 TABLET ONCE MORNING
     Dates: start: 20100101

REACTIONS (2)
  - DYSKINESIA [None]
  - IMPAIRED WORK ABILITY [None]
